FAERS Safety Report 6214203-7 (Version None)
Quarter: 2009Q2

REPORT INFORMATION
  Report Type: 
  Country: None (occurrence: None)
  Receive Date: 20090602
  Receipt Date: 20090518
  Transmission Date: 20091009
  Serious: Yes (Other)
  Sender: FDA-Public Use
  Company Number: 1000006499

PATIENT
  Age: 51 Year
  Sex: Female

DRUGS (3)
  1. ESCITALOPRAM [Suspect]
     Indication: FIBROMYALGIA
     Dosage: 920 MG), ORAL
     Route: 048
     Dates: start: 20090128, end: 20090131
  2. DIAZEPAM [Suspect]
     Indication: FIBROMYALGIA
     Dosage: (5 MG), ORAL
     Route: 048
     Dates: start: 20090128, end: 20090131
  3. ARTILOG (TABLETS) [Suspect]
     Indication: FIBROMYALGIA
     Dosage: (200 MG), ORAL
     Route: 048
     Dates: start: 20090128, end: 20090131

REACTIONS (4)
  - ASTHENIA [None]
  - FATIGUE [None]
  - SEDATION [None]
  - URINARY INCONTINENCE [None]
